FAERS Safety Report 18445699 (Version 1)
Quarter: 2020Q4

REPORT INFORMATION
  Report Type: Spontaneous
  Country: CA (occurrence: CA)
  Receive Date: 20201030
  Receipt Date: 20201030
  Transmission Date: 20210114
  Serious: Yes (Other)
  Sender: FDA-Public Use
  Company Number: CA-JNJFOC-20201034903

PATIENT
  Age: 46 Year
  Sex: Male

DRUGS (1)
  1. INFLIXIMAB, RECOMBINANT [Suspect]
     Active Substance: INFLIXIMAB
     Indication: PRODUCT USED FOR UNKNOWN INDICATION
     Route: 042

REACTIONS (9)
  - Product use issue [Unknown]
  - Fatigue [Unknown]
  - Condition aggravated [Unknown]
  - Haematochezia [Unknown]
  - Off label use [Unknown]
  - Intentional product use issue [Unknown]
  - Pallor [Unknown]
  - Weight increased [Unknown]
  - Weight decreased [Unknown]
